FAERS Safety Report 17365019 (Version 12)
Quarter: 2025Q1

REPORT INFORMATION
  Report Type: Report from Study
  Country: US (occurrence: US)
  Receive Date: 20200204
  Receipt Date: 20250213
  Transmission Date: 20250409
  Serious: Yes (Hospitalization, Other)
  Sender: TAKEDA
  Company Number: US-SHIRE-US202003735

PATIENT
  Age: 47 Year
  Sex: Female
  Weight: 97 kg

DRUGS (34)
  1. HUMAN IMMUNOGLOBULIN G [Suspect]
     Active Substance: HUMAN IMMUNOGLOBULIN G
     Indication: Product used for unknown indication
     Dosage: UNK UNK, Q4WEEKS
     Dates: start: 20200128
  2. HUMAN IMMUNOGLOBULIN G [Suspect]
     Active Substance: HUMAN IMMUNOGLOBULIN G
     Indication: Immunodeficiency common variable
     Dosage: 15 GRAM, 1/WEEK
     Dates: start: 20200923
  3. HUMAN IMMUNOGLOBULIN G [Suspect]
     Active Substance: HUMAN IMMUNOGLOBULIN G
     Dosage: 20 GRAM, 1/WEEK
  4. FLUTICASONE [Concomitant]
     Active Substance: FLUTICASONE
  5. ALPRAZOLAM [Concomitant]
     Active Substance: ALPRAZOLAM
  6. DULOXETINE HYDROCHLORIDE [Concomitant]
     Active Substance: DULOXETINE HYDROCHLORIDE
  7. TIZANIDINE HYDROCHLORIDE [Concomitant]
     Active Substance: TIZANIDINE HYDROCHLORIDE
  8. LISINOPRIL [Concomitant]
     Active Substance: LISINOPRIL
  9. CYCLOBENZAPRINE HYDROCHLORIDE [Concomitant]
     Active Substance: CYCLOBENZAPRINE HYDROCHLORIDE
  10. MELOXICAM [Concomitant]
     Active Substance: MELOXICAM
  11. ACETAMINOPHEN [Concomitant]
     Active Substance: ACETAMINOPHEN
  12. DIPHENHYDRAMINE [Concomitant]
     Active Substance: DIPHENHYDRAMINE
  13. IBUPROFEN [Concomitant]
     Active Substance: IBUPROFEN
  14. LIDOCAINE [Concomitant]
     Active Substance: LIDOCAINE
  15. EPINEPHRINE [Concomitant]
     Active Substance: EPINEPHRINE
  16. ZYRTEC [Concomitant]
     Active Substance: CETIRIZINE HYDROCHLORIDE
  17. BASAGLAR [Concomitant]
     Active Substance: INSULIN GLARGINE
  18. SINGULAIR [Concomitant]
     Active Substance: MONTELUKAST SODIUM
  19. HYDROXYZINE HYDROCHLORIDE [Concomitant]
     Active Substance: HYDROXYZINE HYDROCHLORIDE
  20. OZEMPIC [Concomitant]
     Active Substance: SEMAGLUTIDE
  21. PHENTERMINE HYDROCHLORIDE [Concomitant]
     Active Substance: PHENTERMINE HYDROCHLORIDE
  22. XIGDUO XR [Concomitant]
     Active Substance: DAPAGLIFLOZIN PROPANEDIOL\METFORMIN HYDROCHLORIDE
  23. CITALOPRAM HYDROBROMIDE [Concomitant]
     Active Substance: CITALOPRAM HYDROBROMIDE
  24. CLONAZEPAM [Concomitant]
     Active Substance: CLONAZEPAM
  25. OMEPRAZOLE [Concomitant]
     Active Substance: OMEPRAZOLE
  26. ROSUVASTATIN [Concomitant]
     Active Substance: ROSUVASTATIN
  27. VITAMIN D3 [Concomitant]
     Active Substance: CHOLECALCIFEROL
  28. SPIRONOLACTONE [Concomitant]
     Active Substance: SPIRONOLACTONE
  29. CETIRIZINE [Concomitant]
     Active Substance: CETIRIZINE HYDROCHLORIDE
  30. CALCIUM [Concomitant]
     Active Substance: CALCIUM
  31. ROSUVASTATIN CALCIUM [Concomitant]
     Active Substance: ROSUVASTATIN CALCIUM
  32. FLUTICASONE PROPIONATE [Concomitant]
     Active Substance: FLUTICASONE PROPIONATE
  33. DIPHENHYDRAMINE HYDROCHLORIDE [Concomitant]
     Active Substance: DIPHENHYDRAMINE HYDROCHLORIDE
  34. Lmx [Concomitant]

REACTIONS (21)
  - Post procedural haemorrhage [Unknown]
  - Internal haemorrhage [Unknown]
  - Dehydration [Unknown]
  - Infusion related reaction [Unknown]
  - Seasonal allergy [Unknown]
  - Ear infection [Unknown]
  - Multiple allergies [Unknown]
  - Weight decreased [Unknown]
  - Sinus headache [Unknown]
  - Infusion site hypersensitivity [Unknown]
  - Injection related reaction [Unknown]
  - Product dose omission issue [Unknown]
  - Product distribution issue [Unknown]
  - Sinusitis [Not Recovered/Not Resolved]
  - Feeling abnormal [Unknown]
  - Injection site swelling [Not Recovered/Not Resolved]
  - Injection site erythema [Not Recovered/Not Resolved]
  - Injection site pruritus [Not Recovered/Not Resolved]
  - Infusion site pruritus [Unknown]
  - Fatigue [Unknown]
  - Nausea [Unknown]

NARRATIVE: CASE EVENT DATE: 20200128
